FAERS Safety Report 25706459 (Version 1)
Quarter: 2025Q3

REPORT INFORMATION
  Report Type: Spontaneous
  Country: US (occurrence: None)
  Receive Date: 20250820
  Receipt Date: 20250820
  Transmission Date: 20251021
  Serious: Yes (Other)
  Sender: FDA-CTU
  Company Number: None

PATIENT
  Age: 82 Year
  Sex: Male
  Weight: 76.5 kg

DRUGS (1)
  1. NEOMYCIN AND POLYMYXIN B SULFATES AND DEXAMETHASONE [Suspect]
     Active Substance: DEXAMETHASONE\NEOMYCIN SULFATE\POLYMYXIN B SULFATE
     Dosage: 3.5 G GRAM(S) AT BEDTIME OPHTHALMIC?
     Route: 047
     Dates: start: 20250811, end: 20250819

REACTIONS (3)
  - Documented hypersensitivity to administered product [None]
  - Swelling of eyelid [None]
  - Erythema of eyelid [None]

NARRATIVE: CASE EVENT DATE: 20250811
